FAERS Safety Report 5685245-5 (Version None)
Quarter: 2008Q1

REPORT INFORMATION
  Report Type: 
  Country: None (occurrence: None)
  Receive Date: 20080328
  Receipt Date: 20080317
  Transmission Date: 20080703
  Serious: Yes (Death, Other)
  Sender: FDA-Public Use
  Company Number: US-PFIZER INC-2008005603

PATIENT
  Age: 21 Year
  Sex: Male

DRUGS (2)
  1. VFEND [Suspect]
     Indication: PNEUMONIA FUNGAL
     Route: 048
  2. ANTIBIOTICS [Concomitant]
     Route: 042

REACTIONS (3)
  - LEUKAEMIA [None]
  - MULTI-ORGAN FAILURE [None]
  - PNEUMONIA [None]
